FAERS Safety Report 5078839-1 (Version None)
Quarter: 2006Q3

REPORT INFORMATION
  Report Type: 
  Country: None (occurrence: None)
  Receive Date: 20060814
  Receipt Date: 20060731
  Transmission Date: 20061208
  Serious: Yes (Other)
  Sender: FDA-Public Use
  Company Number: US-BAYER-200613230BCC

PATIENT
  Age: 85 Year
  Sex: Male
  Weight: 104 kg

DRUGS (5)
  1. ALEVE [Suspect]
     Indication: ARTHRITIS
     Dosage: TOTAL DAILY DOSE: 440 MG  UNIT DOSE: 220 MG
     Route: 048
     Dates: start: 20050101, end: 20060726
  2. ZIAC [Concomitant]
  3. SHOP RITE ASPIRIN [Concomitant]
     Dosage: AS USED: 162.5 MG  UNIT DOSE: 325 MG
  4. COSOPT [Concomitant]
     Dosage: UNIT DOSE: 325 MG
     Route: 048
  5. LUMIGAN [Concomitant]

REACTIONS (7)
  - ANOREXIA [None]
  - APHTHOUS STOMATITIS [None]
  - BLOOD ZINC DECREASED [None]
  - BRAIN MASS [None]
  - DYSGEUSIA [None]
  - SINUSITIS [None]
  - WEIGHT DECREASED [None]
